FAERS Safety Report 7337914-9 (Version None)
Quarter: 2011Q1

REPORT INFORMATION
  Report Type: 
  Country: None (occurrence: None)
  Receive Date: 20110308
  Receipt Date: 20110228
  Transmission Date: 20110831
  Serious: Yes (Other)
  Sender: FDA-Public Use
  Company Number: US-ALEXION-A201100270

PATIENT
  Sex: Female

DRUGS (3)
  1. SOLIRIS [Suspect]
     Indication: PAROXYSMAL NOCTURNAL HAEMOGLOBINURIA
     Dosage: 600 MG, QW
     Route: 042
     Dates: start: 20110113, end: 20110131
  2. PREDNISONE [Concomitant]
     Dosage: 40 MG, UNK
     Dates: start: 20110214
  3. SOLIRIS [Suspect]
     Dosage: 600 MG, UNK
     Route: 042
     Dates: start: 20110223

REACTIONS (4)
  - BLOOD PRESSURE INCREASED [None]
  - NERVOUSNESS [None]
  - ERYTHEMA [None]
  - ANXIETY [None]
